FAERS Safety Report 6289139-6 (Version None)
Quarter: 2009Q3

REPORT INFORMATION
  Report Type: 
  Country: None (occurrence: None)
  Receive Date: 20090728
  Receipt Date: 20090713
  Transmission Date: 20100115
  Serious: Yes (Other)
  Sender: FDA-Public Use
  Company Number: PHHY2009KR28950

PATIENT
  Age: 68 Year
  Sex: Male

DRUGS (1)
  1. VISUDYNE [Suspect]
     Indication: POLYPOIDAL CHOROIDAL VASCULOPATHY

REACTIONS (7)
  - CONDITION AGGRAVATED [None]
  - DETACHMENT OF RETINAL PIGMENT EPITHELIUM [None]
  - MACULOPATHY [None]
  - POLYPOIDAL CHOROIDAL VASCULOPATHY [None]
  - RETINAL HAEMORRHAGE [None]
  - VISUAL ACUITY REDUCED [None]
  - VISUAL IMPAIRMENT [None]
